FAERS Safety Report 6405307-4 (Version None)
Quarter: 2009Q4

REPORT INFORMATION
  Report Type: 
  Country: None (occurrence: None)
  Receive Date: 20091019
  Receipt Date: 20091016
  Transmission Date: 20100525
  Serious: Yes (Hospitalization)
  Sender: FDA-Public Use
  Company Number: AU-B.I. PHARMACEUTICALS,INC./RIDGEFIELD-2009-AU-00594AU

PATIENT
  Sex: Male
  Weight: 80 kg

DRUGS (5)
  1. MICARDIS HCT [Suspect]
     Indication: BLOOD PRESSURE
     Dates: start: 20070719
  2. EZETROL [Concomitant]
     Dosage: 10 MG
     Dates: start: 20070719
  3. LIPIDIL [Concomitant]
     Dosage: 145 MG
     Dates: start: 20070719
  4. METFORMIN HCL [Concomitant]
     Dosage: 850 MG
     Dates: start: 20070719
  5. DIAMICRON MR [Concomitant]
     Dosage: 60 MG
     Dates: start: 20070719

REACTIONS (4)
  - ANXIETY [None]
  - BLOOD PRESSURE DECREASED [None]
  - DIZZINESS [None]
  - TACHYCARDIA [None]
